FAERS Safety Report 24185134 (Version 1)
Quarter: 2024Q3

REPORT INFORMATION
  Report Type: Spontaneous
  Country: CN (occurrence: CN)
  Receive Date: 20240807
  Receipt Date: 20240807
  Transmission Date: 20241016
  Serious: Yes (Other)
  Sender: PFIZER
  Company Number: CN-PFIZER INC-PV202400101189

PATIENT
  Age: 33 Year
  Sex: Female
  Weight: 52 kg

DRUGS (3)
  1. METHOTREXATE SODIUM [Suspect]
     Active Substance: METHOTREXATE SODIUM
     Indication: Ectopic pregnancy
     Dosage: 72 MG, 1X/DAY
     Route: 030
     Dates: start: 20240720, end: 20240720
  2. MIFEPRISTONE [Concomitant]
     Active Substance: MIFEPRISTONE
     Indication: Ectopic pregnancy
     Dosage: 50 MG, 2X/DAY
     Route: 048
     Dates: start: 20240717, end: 20240721
  3. SODIUM CHLORIDE [Concomitant]
     Active Substance: SODIUM CHLORIDE
     Indication: Vehicle solution use
     Dosage: 2 ML, 1X/DAY
     Route: 030
     Dates: start: 20240720, end: 20240720

REACTIONS (5)
  - Nausea [Recovered/Resolved]
  - Vomiting [Recovered/Resolved]
  - Chest discomfort [Recovered/Resolved]
  - Hepatic function abnormal [Recovered/Resolved]
  - Off label use [Recovered/Resolved]

NARRATIVE: CASE EVENT DATE: 20240720
